FAERS Safety Report 7003103-0 (Version None)
Quarter: 2010Q3

REPORT INFORMATION
  Report Type: 
  Country: None (occurrence: None)
  Receive Date: 20100920
  Receipt Date: 20091215
  Transmission Date: 20110219
  Serious: No
  Sender: FDA-Public Use
  Company Number: US-ASTRAZENECA-2009SE32222

PATIENT
  Age: 21 Year
  Sex: Male
  Weight: 85.7 kg

DRUGS (3)
  1. SEROQUEL [Suspect]
     Indication: DEPRESSION
     Route: 048
  2. ZOLOFT [Concomitant]
     Route: 048
  3. SIMVASTATIN [Concomitant]
     Indication: HYPERCHOLESTEROLAEMIA
     Route: 048

REACTIONS (3)
  - BREAST ENLARGEMENT [None]
  - HYPERCHOLESTEROLAEMIA [None]
  - SELF ESTEEM DECREASED [None]
